FAERS Safety Report 7477671-9 (Version None)
Quarter: 2011Q2

REPORT INFORMATION
  Report Type: 
  Country: None (occurrence: None)
  Receive Date: 20110513
  Receipt Date: 20110404
  Transmission Date: 20111010
  Serious: Yes (Other)
  Sender: FDA-Public Use
  Company Number: US-BAYER-201039342NA

PATIENT
  Age: 21 Year
  Sex: Female
  Weight: 56 kg

DRUGS (16)
  1. YASMIN [Suspect]
     Indication: PRODUCT USED FOR UNKNOWN INDICATION
     Route: 048
     Dates: start: 20060201, end: 20070821
  2. YAZ [Suspect]
     Indication: PRODUCT USED FOR UNKNOWN INDICATION
     Route: 048
     Dates: start: 20070821, end: 20100121
  3. CIPRO [Concomitant]
     Indication: OVERGROWTH BACTERIAL
     Dosage: 500 MG, BID
  4. LEVSIN [Concomitant]
     Indication: MUSCLE SPASMS
     Dosage: UNK
     Route: 060
     Dates: start: 20070108
  5. EXCEDRIN (MIGRAINE) [Concomitant]
     Dosage: UNK UNK, PRN
  6. CIPRO [Concomitant]
     Indication: CROHN'S DISEASE
  7. FLAGYL [Concomitant]
     Indication: OVERGROWTH BACTERIAL
     Dosage: 250 MG, TID
  8. TPN [Concomitant]
     Dosage: UNK UNK, QD
     Dates: start: 20070108
  9. ZOLOFT [Concomitant]
     Dosage: UNK UNK, OW
  10. CIPRO [Concomitant]
     Indication: ILEITIS
     Dosage: UNK UNK, BID
     Dates: start: 20061127
  11. FLAGYL [Concomitant]
     Indication: CROHN'S DISEASE
  12. MOTRIN [Concomitant]
     Dosage: UNK UNK, PRN
  13. FLAGYL [Concomitant]
     Indication: DIARRHOEA
  14. CIPRO [Concomitant]
     Indication: DIARRHOEA
  15. FLAGYL [Concomitant]
     Indication: ILEITIS
     Dosage: 500 MG, TID
     Dates: start: 20061127
  16. CITRUCEL [Concomitant]
     Dosage: UNK
     Dates: start: 20070108

REACTIONS (3)
  - CHOLELITHIASIS [None]
  - CHOLECYSTECTOMY [None]
  - CHOLECYSTITIS CHRONIC [None]
